FAERS Safety Report 5630390-3 (Version None)
Quarter: 2008Q1

REPORT INFORMATION
  Report Type: 
  Country: None (occurrence: None)
  Receive Date: 20080219
  Receipt Date: 20080212
  Transmission Date: 20080703
  Serious: Yes (Other)
  Sender: FDA-Public Use
  Company Number: PHRM2008FR00830

PATIENT
  Sex: Female

DRUGS (1)
  1. DESFERAL [Suspect]
     Dosage: UNK, UNK
     Route: 065

REACTIONS (1)
  - BLOOD CREATININE INCREASED [None]
